FAERS Safety Report 9855379 (Version 2)
Quarter: 2014Q1

REPORT INFORMATION
  Report Type: Spontaneous
  Country: TW (occurrence: TW)
  Receive Date: 20140130
  Receipt Date: 20140130
  Transmission Date: 20141002
  Serious: Yes (Hospitalization)
  Sender: FDA-Public Use
  Company Number: TW-PFIZER INC-2014018683

PATIENT
  Sex: 0

DRUGS (1)
  1. CRIZOTINIB [Suspect]
     Indication: NON-SMALL CELL LUNG CANCER

REACTIONS (3)
  - Myopathy [Unknown]
  - Myoglobinuria [Unknown]
  - Blood creatine phosphokinase increased [Recovering/Resolving]
